FAERS Safety Report 6356406-7 (Version None)
Quarter: 2009Q3

REPORT INFORMATION
  Report Type: 
  Country: None (occurrence: None)
  Receive Date: 20090915
  Receipt Date: 20090911
  Transmission Date: 20100115
  Serious: Yes (Death, Life-Threatening, Hospitalization)
  Sender: FDA-Public Use
  Company Number: JP-AVENTIS-200912120JP

PATIENT
  Age: 70 Year
  Sex: Male
  Weight: 65 kg

DRUGS (4)
  1. TAXOTERE [Suspect]
     Route: 041
     Dates: start: 20090303, end: 20090708
  2. CARBOPLATIN [Suspect]
     Route: 042
     Dates: start: 20090303, end: 20090624
  3. KYTRIL                             /01178101/ [Concomitant]
     Route: 042
     Dates: start: 20090303, end: 20090624
  4. DECADRON [Concomitant]
     Route: 042
     Dates: start: 20090303, end: 20090708

REACTIONS (1)
  - INTERSTITIAL LUNG DISEASE [None]
